FAERS Safety Report 10259840 (Version 1)
Quarter: 2014Q2

REPORT INFORMATION
  Report Type: Spontaneous
  Country: US (occurrence: US)
  Receive Date: 20140625
  Receipt Date: 20140625
  Transmission Date: 20141212
  Serious: Yes (Hospitalization)
  Sender: FDA-Public Use
  Company Number: US-GLAXOSMITHKLINE-A1077718A

PATIENT
  Age: 53 Year
  Sex: Male

DRUGS (5)
  1. ADVAIR [Suspect]
     Indication: ASTHMA
     Dosage: 1PUFF TWICE PER DAY
     Route: 055
     Dates: start: 2004
  2. CELEBREX [Suspect]
     Indication: PRODUCT USED FOR UNKNOWN INDICATION
     Route: 065
  3. INSULIN [Concomitant]
  4. BLOOD PRESSURE MEDICATION [Concomitant]
  5. LIPITOR [Concomitant]

REACTIONS (16)
  - Myocardial infarction [Recovering/Resolving]
  - Stent placement [Unknown]
  - Renal failure [Recovered/Resolved]
  - Dry throat [Unknown]
  - Drug administration error [Unknown]
  - Arthritis [Unknown]
  - Arterial occlusive disease [Unknown]
  - Atrioventricular block [Unknown]
  - Cardiac disorder [Unknown]
  - Muscular weakness [Unknown]
  - Renal disorder [Recovered/Resolved]
  - Feeling abnormal [Unknown]
  - Arrhythmia [Unknown]
  - Asthma [Unknown]
  - Respiratory fume inhalation disorder [Unknown]
  - Environmental exposure [Unknown]
